FAERS Safety Report 23202600 (Version 2)
Quarter: 2024Q1

REPORT INFORMATION
  Report Type: Report from Study
  Country: US (occurrence: US)
  Receive Date: 20231120
  Receipt Date: 20240209
  Transmission Date: 20240409
  Serious: No
  Sender: FDA-Public Use
  Company Number: US-GSK-US2023156830

PATIENT
  Sex: Female

DRUGS (1)
  1. MEPOLIZUMAB [Suspect]
     Active Substance: MEPOLIZUMAB
     Indication: Product used for unknown indication
     Dosage: UNK

REACTIONS (6)
  - Nasal congestion [Unknown]
  - Wheezing [Unknown]
  - Asthma [Unknown]
  - Sinusitis [Unknown]
  - Drug ineffective [Unknown]
  - Product dose omission issue [Unknown]
